FAERS Safety Report 7532980-X (Version None)
Quarter: 2011Q2

REPORT INFORMATION
  Report Type: 
  Country: None (occurrence: None)
  Receive Date: 20110608
  Receipt Date: 20110525
  Transmission Date: 20111010
  Serious: Yes (Hospitalization)
  Sender: FDA-Public Use
  Company Number: US-JNJFOC-20110602608

PATIENT
  Sex: Female
  Weight: 55.52 kg

DRUGS (3)
  1. REMICADE [Suspect]
     Dosage: #25 INFLIXIMAB, DOSE ALSO REPORTED AS 5 MG/KG
     Route: 042
     Dates: start: 20101124
  2. REMICADE [Suspect]
     Dosage: #23 INFLIXIMAB, DOSE ALSO REPORTED AS 5MG/KG
     Route: 042
     Dates: start: 20100831
  3. REMICADE [Suspect]
     Indication: COLITIS ULCERATIVE
     Dosage: #24 INFLIXIMAB, DOSE ALSO REPORTED AS 5 MG/KG
     Route: 042
     Dates: start: 20101013

REACTIONS (4)
  - ABORTION SPONTANEOUS [None]
  - UTERINE INFECTION [None]
  - DRUG EXPOSURE DURING PREGNANCY [None]
  - RETAINED PLACENTA OR MEMBRANES [None]
